FAERS Safety Report 10484962 (Version 2)
Quarter: 2014Q4

REPORT INFORMATION
  Report Type: Report from Study
  Country: JP (occurrence: JP)
  Receive Date: 20140930
  Receipt Date: 20141010
  Transmission Date: 20150528
  Serious: Yes (Hospitalization)
  Sender: FDA-Public Use
  Company Number: PHHO2014JP012960

PATIENT
  Age: 65 Year
  Sex: Male
  Weight: 74 kg

DRUGS (24)
  1. ANCARON [Concomitant]
     Active Substance: AMIODARONE HYDROCHLORIDE
     Indication: CONGESTIVE CARDIOMYOPATHY
  2. WARFARIN POTASSIUM [Concomitant]
     Active Substance: WARFARIN POTASSIUM
     Indication: CARDIOVASCULAR DISORDER
     Dosage: 2.25MG, 2.5MG, 3MG, 2.5MG,3MG, 2MG
     Route: 048
  3. LOXOPROFEN SODIUM [Concomitant]
     Active Substance: LOXOPROFEN SODIUM
     Indication: SPINAL PAIN
     Dates: start: 20110511
  4. ALISKIREN [Suspect]
     Active Substance: ALISKIREN
     Indication: CARDIAC FAILURE CHRONIC
     Dosage: UNK
     Route: 048
     Dates: start: 20100626
  5. ARTIST [Concomitant]
     Active Substance: CARVEDILOL
     Indication: CARDIAC FAILURE CHRONIC
     Dosage: 20 MG, UNK
     Route: 048
  6. ASPIRIN. [Concomitant]
     Active Substance: ASPIRIN
     Indication: CARDIOVASCULAR DISORDER
     Dosage: 81 MG, UNK
     Route: 048
  7. TIZANIDINE HYDROCHLORIDE. [Concomitant]
     Active Substance: TIZANIDINE HYDROCHLORIDE
     Indication: BACK PAIN
     Route: 048
     Dates: start: 20110511
  8. REBAMIPIDE [Concomitant]
     Active Substance: REBAMIPIDE
     Indication: GASTRITIS PROPHYLAXIS
     Dates: start: 20110311, end: 20130322
  9. REBAMIPIDE [Concomitant]
     Active Substance: REBAMIPIDE
     Indication: GASTROENTERITIS
  10. ARTIST [Concomitant]
     Active Substance: CARVEDILOL
     Indication: CONGESTIVE CARDIOMYOPATHY
  11. LORCAM [Concomitant]
     Active Substance: LORNOXICAM
     Indication: BACK PAIN
     Route: 048
     Dates: start: 20110511
  12. ETHYL ICOSAPENTATE [Concomitant]
     Active Substance: ETHYL ICOSAPENTATE
     Indication: HYPERLIPIDAEMIA
     Route: 048
     Dates: start: 20120618
  13. FUROSEMIDE. [Concomitant]
     Active Substance: FUROSEMIDE
     Indication: CARDIAC FAILURE CHRONIC
     Dosage: 20MG, 40MG, 20MG
     Route: 048
     Dates: start: 20110513
  14. ANCARON [Concomitant]
     Active Substance: AMIODARONE HYDROCHLORIDE
     Indication: CARDIOVASCULAR DISORDER
     Dosage: 100MG,100MG
     Route: 048
  15. ANCARON [Concomitant]
     Active Substance: AMIODARONE HYDROCHLORIDE
     Indication: CARDIAC FAILURE CHRONIC
  16. DIGOXIN. [Concomitant]
     Active Substance: DIGOXIN
     Indication: CARDIOVASCULAR DISORDER
     Dosage: 0.25MG, 0.125MG, 0.0625MG, 0.125MG
     Route: 048
  17. ALLOPURINOL. [Concomitant]
     Active Substance: ALLOPURINOL
     Indication: HYPERLIPIDAEMIA
     Route: 048
     Dates: start: 20120820, end: 20121029
  18. BIFIDOBACTERIUM [Concomitant]
     Active Substance: BIFIDOBACTERIUM LONGUM
     Indication: GASTROENTERITIS
     Route: 048
     Dates: start: 20130315, end: 20130322
  19. ENALAPRIL MALEATE. [Concomitant]
     Active Substance: ENALAPRIL MALEATE
     Indication: CARDIAC FAILURE CHRONIC
     Dosage: 10 NG, UNK
     Route: 048
     Dates: end: 20100625
  20. FUROSEMIDE. [Concomitant]
     Active Substance: FUROSEMIDE
     Dosage: 20 MG, UNK
     Route: 042
     Dates: start: 20110617, end: 20110617
  21. MECOBALAMIN [Concomitant]
     Active Substance: METHYLCOBALAMIN
     Indication: BACK PAIN
     Route: 048
     Dates: start: 20110511
  22. SPIRONOLACTONE. [Concomitant]
     Active Substance: SPIRONOLACTONE
     Indication: CARDIAC FAILURE CHRONIC
     Dosage: 25 MG, UNK
     Route: 048
     Dates: start: 20110618, end: 20140228
  23. LEVOTHYROXINE SODIUM. [Concomitant]
     Active Substance: LEVOTHYROXINE SODIUM
     Indication: ADVERSE EVENT
     Route: 048
     Dates: start: 20110416
  24. FEBUXOSTAT. [Concomitant]
     Active Substance: FEBUXOSTAT
     Indication: HYPERLIPIDAEMIA
     Route: 048
     Dates: start: 20121010

REACTIONS (1)
  - Ventricular tachycardia [Recovering/Resolving]

NARRATIVE: CASE EVENT DATE: 20140922
